FAERS Safety Report 4930817-6 (Version None)
Quarter: 2006Q1

REPORT INFORMATION
  Report Type: 
  Country: None (occurrence: None)
  Receive Date: 20060227
  Receipt Date: 20060214
  Transmission Date: 20060701
  Serious: Yes (Death, Hospitalization, Other)
  Sender: FDA-Public Use
  Company Number: 2006018763

PATIENT
  Age: 24 Year
  Sex: Female
  Weight: 49 kg

DRUGS (4)
  1. SILDENAFIL CITRATE [Suspect]
     Indication: PULMONARY HYPERTENSION
     Dosage: 75 MG (25 MG, 3 IN 1 D), ORAL
     Route: 048
     Dates: start: 20050211, end: 20060107
  2. FUROSEMIDE [Concomitant]
  3. SPIRONOLACTONE [Concomitant]
  4. ACENOCOUMAROL (ACENOCOUMAROL) [Concomitant]

REACTIONS (17)
  - CARDIAC FAILURE [None]
  - CARDIO-RESPIRATORY ARREST [None]
  - CARDIOMEGALY [None]
  - DYSPNOEA [None]
  - DYSPNOEA PAROXYSMAL NOCTURNAL [None]
  - GENERAL PHYSICAL CONDITION ABNORMAL [None]
  - HEPATOMEGALY [None]
  - LIVER DISORDER [None]
  - LUNG DISORDER [None]
  - NAUSEA [None]
  - OLIGURIA [None]
  - PULMONARY ARTERY ANEURYSM [None]
  - RIGHT VENTRICULAR FAILURE [None]
  - SYNCOPE [None]
  - UPPER RESPIRATORY TRACT INFECTION [None]
  - VENTRICULAR SEPTAL DEFECT [None]
  - VOMITING [None]
